FAERS Safety Report 12318198 (Version 4)
Quarter: 2016Q3

REPORT INFORMATION
  Report Type: Spontaneous
  Country: US (occurrence: US)
  Receive Date: 20160429
  Receipt Date: 20160929
  Transmission Date: 20161109
  Serious: Yes (Congenital Anomaly, Other)
  Sender: FDA-Public Use
  Company Number: PHEH2016US010471

PATIENT
  Sex: Female

DRUGS (1)
  1. ZOFRAN [Suspect]
     Active Substance: ONDANSETRON HYDROCHLORIDE
     Indication: FOETAL EXPOSURE DURING PREGNANCY
     Dosage: MOTHER DOSE: 8 MG THRICE DAILY
     Route: 064

REACTIONS (54)
  - Congenital anomaly [Unknown]
  - Microcephaly [Unknown]
  - Quadriplegia [Unknown]
  - Cerebral atrophy [Unknown]
  - Developmental delay [Unknown]
  - Eye irritation [Unknown]
  - Precocious puberty [Unknown]
  - Gait disturbance [Unknown]
  - Cerebral ventricle dilatation [Unknown]
  - Hypoxic-ischaemic encephalopathy [Unknown]
  - Respiratory arrest [Unknown]
  - Foetal exposure during pregnancy [Unknown]
  - Drooling [Unknown]
  - Ventricular hypertrophy [Unknown]
  - Constipation [Unknown]
  - Cerebral palsy [Unknown]
  - Subdural haematoma [Unknown]
  - Quadriparesis [Unknown]
  - Mitral valve incompetence [Unknown]
  - Blepharitis [Unknown]
  - Language disorder [Unknown]
  - Muscle tone disorder [Unknown]
  - Pyrexia [Unknown]
  - Dyspnoea [Unknown]
  - Strabismus [Unknown]
  - Left-to-right cardiac shunt [Unknown]
  - Tricuspid valve incompetence [Unknown]
  - Deformity [Unknown]
  - Cardiomegaly [Unknown]
  - Ventricular septal defect [Unknown]
  - Pancreatitis [Unknown]
  - Selective eating disorder [Unknown]
  - Cardiac murmur [Unknown]
  - Anxiety [Unknown]
  - Diplegia [Unknown]
  - Pain [Unknown]
  - Self esteem decreased [Unknown]
  - Sleep apnoea syndrome [Unknown]
  - Respiratory distress [Unknown]
  - Haematemesis [Unknown]
  - Upper airway obstruction [Unknown]
  - Injury [Unknown]
  - Emotional distress [Unknown]
  - Weight decreased [Unknown]
  - Speech disorder [Unknown]
  - Transposition of the great vessels [Unknown]
  - Scoliosis [Unknown]
  - Brain injury [Unknown]
  - Cardiac ventricular disorder [Unknown]
  - Joint dislocation [Unknown]
  - Seizure [Unknown]
  - Anhedonia [Unknown]
  - Seborrhoea [Unknown]
  - Ocular hyperaemia [Unknown]
